FAERS Safety Report 15810023 (Version 1)
Quarter: 2019Q1

REPORT INFORMATION
  Report Type: Spontaneous
  Country: CN (occurrence: CN)
  Receive Date: 20190111
  Receipt Date: 20190111
  Transmission Date: 20190417
  Serious: Yes (Other)
  Sender: FDA-Public Use
  Company Number: CN-ROCHE-2241844

PATIENT
  Age: 58 Year
  Sex: Female

DRUGS (18)
  1. ZOLEDRONIC ACID [Concomitant]
     Active Substance: ZOLEDRONIC ACID
     Route: 065
     Dates: start: 20170516
  2. CISPLATIN. [Concomitant]
     Active Substance: CISPLATIN
     Indication: BREAST CANCER STAGE IV
  3. LETROZOLE. [Concomitant]
     Active Substance: LETROZOLE
     Route: 048
     Dates: start: 201601, end: 20160719
  4. ZOLEDRONIC ACID [Concomitant]
     Active Substance: ZOLEDRONIC ACID
     Dosage: Q28
     Route: 042
     Dates: start: 20160929, end: 20170412
  5. EPIRUBICIN [Concomitant]
     Active Substance: EPIRUBICIN
     Route: 042
  6. ZOLEDRONIC ACID [Concomitant]
     Active Substance: ZOLEDRONIC ACID
     Indication: BREAST CANCER STAGE IV
     Route: 042
     Dates: start: 20160901
  7. DOCETAXEL. [Concomitant]
     Active Substance: DOCETAXEL
     Route: 042
     Dates: start: 20160803
  8. DOCETAXEL. [Concomitant]
     Active Substance: DOCETAXEL
     Route: 042
     Dates: start: 20160901
  9. CAPECITABINE. [Suspect]
     Active Substance: CAPECITABINE
     Indication: METASTASES TO LUNG
     Dosage: BID, D1-14/Q21
     Route: 048
     Dates: start: 20160929, end: 20170412
  10. ZOLEDRONIC ACID [Concomitant]
     Active Substance: ZOLEDRONIC ACID
     Indication: METASTASES TO LUNG
     Route: 042
     Dates: start: 20160803
  11. CISPLATIN. [Concomitant]
     Active Substance: CISPLATIN
     Indication: METASTASES TO LUNG
     Dosage: D1-3
     Route: 042
     Dates: start: 20170516
  12. CAPECITABINE. [Suspect]
     Active Substance: CAPECITABINE
     Indication: BREAST CANCER STAGE IV
  13. NAVELBINE [Concomitant]
     Active Substance: VINORELBINE TARTRATE
     Indication: BREAST CANCER STAGE IV
  14. ZOLEDRONIC ACID [Concomitant]
     Active Substance: ZOLEDRONIC ACID
     Route: 065
     Dates: start: 20160720
  15. DOCETAXEL. [Concomitant]
     Active Substance: DOCETAXEL
     Indication: METASTASES TO LUNG
     Route: 042
     Dates: start: 20160803
  16. DOCETAXEL. [Concomitant]
     Active Substance: DOCETAXEL
     Indication: BREAST CANCER STAGE IV
     Route: 042
     Dates: start: 20160901
  17. EPIRUBICIN [Concomitant]
     Active Substance: EPIRUBICIN
     Route: 042
  18. NAVELBINE [Concomitant]
     Active Substance: VINORELBINE TARTRATE
     Indication: METASTASES TO LUNG
     Dosage: D1, 8
     Route: 042
     Dates: start: 20170516

REACTIONS (2)
  - Gastrointestinal disorder [Unknown]
  - Fatigue [Unknown]
